FAERS Safety Report 18707433 (Version 1)
Quarter: 2021Q1

REPORT INFORMATION
  Report Type: Spontaneous
  Country: US (occurrence: US)
  Receive Date: 20210106
  Receipt Date: 20210106
  Transmission Date: 20210419
  Serious: No
  Sender: FDA-Public Use
  Company Number: US-GLENMARK PHARMACEUTICALS-2020GMK045949

PATIENT

DRUGS (1)
  1. RANITIDINE TABLETS USP, 300 MG [Suspect]
     Active Substance: RANITIDINE HYDROCHLORIDE
     Indication: DYSPEPSIA
     Dosage: UNK
     Route: 048

REACTIONS (8)
  - Recalled product administered [Unknown]
  - Nausea [Unknown]
  - Swelling [Unknown]
  - Gastric disorder [Unknown]
  - Illness [Unknown]
  - Diarrhoea [Unknown]
  - Sleep disorder [Unknown]
  - Headache [Unknown]
